FAERS Safety Report 6934938-8 (Version None)
Quarter: 2010Q3

REPORT INFORMATION
  Report Type: 
  Country: None (occurrence: None)
  Receive Date: 20100821
  Receipt Date: 20100811
  Transmission Date: 20110219
  Serious: Yes (Hospitalization)
  Sender: FDA-Public Use
  Company Number: GXKR2010NL09012

PATIENT
  Age: 48 Year
  Sex: Female

DRUGS (6)
  1. CYCLOSPORINE [Suspect]
     Indication: APLASTIC ANAEMIA
     Dosage: 350 MG, BID
     Route: 048
  2. CYCLOSPORINE [Suspect]
     Dosage: DOSE WAS DECREASED BY 20%
  3. PREDNISONE [Concomitant]
     Dosage: 60 MG, QD
     Route: 065
  4. CIPROFLOXACIN [Concomitant]
     Dosage: 500 MG, BID
     Route: 065
  5. FLUCONAZOLE [Concomitant]
     Dosage: 200 MG, QD
     Route: 065
  6. ANTI-THYMOCYTE GLOBULIN NOS [Concomitant]
     Indication: SERUM SICKNESS
     Dosage: 15 MG/KG, QD
     Route: 065

REACTIONS (6)
  - ASTHENIA [None]
  - BICYTOPENIA [None]
  - CEREBROVASCULAR ACCIDENT [None]
  - CEREBROVASCULAR SPASM [None]
  - FEELING COLD [None]
  - HYPOAESTHESIA FACIAL [None]
